FAERS Safety Report 4437020-7 (Version None)
Quarter: 2004Q3

REPORT INFORMATION
  Report Type: 
  Country: None (occurrence: None)
  Receive Date: 20040830
  Receipt Date: 20040407
  Transmission Date: 20050211
  Serious: Yes (Hospitalization, Disabling)
  Sender: FDA-Public Use
  Company Number: US-MERCK-0404USA00918

PATIENT
  Age: 44 Year
  Sex: Female
  Weight: 59 kg

DRUGS (4)
  1. VIOXX [Suspect]
     Indication: EXOSTOSIS
     Route: 048
     Dates: start: 20000727, end: 20000827
  2. VIOXX [Suspect]
     Route: 048
     Dates: start: 20000501
  3. VIOXX [Suspect]
     Indication: BURSITIS
     Route: 048
     Dates: start: 20000727, end: 20000827
  4. VIOXX [Suspect]
     Route: 048
     Dates: start: 20000501

REACTIONS (15)
  - ACUTE MYOCARDIAL INFARCTION [None]
  - ANGINA PECTORIS [None]
  - ANXIETY [None]
  - BLOOD POTASSIUM DECREASED [None]
  - BLOOD SODIUM DECREASED [None]
  - BURNING SENSATION [None]
  - CARDIAC MURMUR [None]
  - CORONARY ARTERY OCCLUSION [None]
  - DYSPEPSIA [None]
  - ELECTROCARDIOGRAM ST SEGMENT ELEVATION [None]
  - EMOTIONAL DISTRESS [None]
  - EPIGASTRIC DISCOMFORT [None]
  - FATIGUE [None]
  - NAUSEA [None]
  - VOMITING [None]
